FAERS Safety Report 10369448 (Version 1)
Quarter: 2014Q3

REPORT INFORMATION
  Report Type: Spontaneous
  Country: DE (occurrence: GB)
  Receive Date: 20140807
  Receipt Date: 20140807
  Transmission Date: 20150326
  Serious: Yes (Hospitalization)
  Sender: FDA-Public Use
  Company Number: GB-FRI-1000069731

PATIENT
  Age: 79 Year
  Sex: Female
  Weight: 45 kg

DRUGS (7)
  1. LORAZEPAM. [Concomitant]
     Active Substance: LORAZEPAM
  2. NITRAZEPAM [Concomitant]
     Active Substance: NITRAZEPAM
  3. TINZAPARIN [Concomitant]
     Active Substance: TINZAPARIN
  4. FOLIC ACID. [Concomitant]
     Active Substance: FOLIC ACID
  5. LANSOPRAZOLE. [Concomitant]
     Active Substance: LANSOPRAZOLE
  6. MEMANTINE [Suspect]
     Active Substance: MEMANTINE
     Indication: DEMENTIA
     Dosage: 5 MG
     Route: 048
     Dates: start: 20140722, end: 20140723
  7. SERTRALINE [Concomitant]
     Active Substance: SERTRALINE HYDROCHLORIDE

REACTIONS (2)
  - Generalised tonic-clonic seizure [Recovered/Resolved]
  - Off label use [Recovered/Resolved]

NARRATIVE: CASE EVENT DATE: 20140722
